FAERS Safety Report 11244631 (Version 5)
Quarter: 2018Q3

REPORT INFORMATION
  Report Type: Spontaneous
  Country: US (occurrence: US)
  Receive Date: 20150707
  Receipt Date: 20180727
  Transmission Date: 20181010
  Serious: No
  Sender: FDA-Public Use
  Company Number: US-PFIZER INC-2015223729

PATIENT
  Age: 62 Year
  Sex: Female
  Weight: 66 kg

DRUGS (4)
  1. CELECOXIB. [Suspect]
     Active Substance: CELECOXIB
     Indication: BACK PAIN
     Dosage: 200 MG, 2X/DAY
     Route: 048
  2. CELEBREX [Suspect]
     Active Substance: CELECOXIB
     Indication: BACK PAIN
     Dosage: 200 MG, 2X/DAY
     Route: 048
  3. NORTRIPTYLINE [Suspect]
     Active Substance: NORTRIPTYLINE
     Indication: NEURALGIA
     Dosage: UNK
     Dates: start: 20150626
  4. LIDOCAINE HCL [Concomitant]
     Active Substance: LIDOCAINE HYDROCHLORIDE
     Dosage: UNK

REACTIONS (13)
  - Back disorder [Unknown]
  - Headache [Unknown]
  - Drug ineffective [Unknown]
  - Dry mouth [Unknown]
  - Sleep disorder [Unknown]
  - Paraesthesia [Unknown]
  - Oropharyngeal pain [Unknown]
  - Neuralgia [Not Recovered/Not Resolved]
  - Impaired driving ability [Unknown]
  - Intervertebral disc degeneration [Unknown]
  - Dysstasia [Unknown]
  - Intervertebral disc protrusion [Unknown]
  - Gait inability [Unknown]

NARRATIVE: CASE EVENT DATE: 2015
